FAERS Safety Report 4676596-1 (Version None)
Quarter: 2005Q2

REPORT INFORMATION
  Report Type: 
  Country: None (occurrence: None)
  Receive Date: 20050525
  Receipt Date: 20050512
  Transmission Date: 20051028
  Serious: Yes (Hospitalization, Other)
  Sender: FDA-Public Use
  Company Number: 2005049031

PATIENT
  Age: 82 Year
  Sex: Female

DRUGS (2)
  1. NEURONTIN [Suspect]
     Indication: FACIAL PAIN
  2. ARICEPT [Concomitant]

REACTIONS (4)
  - FACIAL PALSY [None]
  - MENINGITIS [None]
  - METASTASES TO MENINGES [None]
  - TONIC CLONIC MOVEMENTS [None]
